FAERS Safety Report 23961804 (Version 1)
Quarter: 2024Q2

REPORT INFORMATION
  Report Type: Spontaneous
  Country: US (occurrence: None)
  Receive Date: 20240610
  Receipt Date: 20240610
  Transmission Date: 20240715
  Serious: No
  Sender: FDA-Public Use
  Company Number: None

PATIENT
  Age: 71 Year
  Sex: Female
  Weight: 149.69 kg

DRUGS (1)
  1. STELARA [Suspect]
     Active Substance: USTEKINUMAB
     Indication: Psoriasis
     Dosage: INJECT 90MG SUBCUTANEOUSLY  AT WEEK 0 AND  WEEK 4  AS  DIRECTED.
     Route: 058
     Dates: start: 202109

REACTIONS (1)
  - Surgery [None]
